FAERS Safety Report 19184164 (Version 1)
Quarter: 2021Q2

REPORT INFORMATION
  Report Type: Spontaneous
  Country: US (occurrence: US)
  Receive Date: 20210427
  Receipt Date: 20210427
  Transmission Date: 20210717
  Serious: Yes (Hospitalization)
  Sender: FDA-Public Use
  Company Number: US-SA-2021SA135078

PATIENT
  Age: 74 Year
  Sex: Male

DRUGS (1)
  1. AUBAGIO [Suspect]
     Active Substance: TERIFLUNOMIDE
     Indication: MULTIPLE SCLEROSIS
     Route: 048
     Dates: start: 20200716

REACTIONS (6)
  - COVID-19 [Unknown]
  - Alopecia [Unknown]
  - Fall [Unknown]
  - Concussion [Unknown]
  - Decreased interest [Unknown]
  - SARS-CoV-2 test positive [Unknown]
